FAERS Safety Report 9789891 (Version 1)
Quarter: 2013Q4

REPORT INFORMATION
  Report Type: Spontaneous
  Country: US (occurrence: None)
  Receive Date: 20131230
  Receipt Date: 20131230
  Transmission Date: 20140711
  Serious: Yes (Other)
  Sender: FDA-Public Use
  Company Number: None

PATIENT
  Sex: Female
  Weight: 82.56 kg

DRUGS (13)
  1. XARELTO [Suspect]
     Indication: THROMBOSIS PROPHYLAXIS
     Route: 048
     Dates: start: 20130814, end: 20131212
  2. XARELTO [Suspect]
     Indication: CEREBROVASCULAR ACCIDENT PROPHYLAXIS
     Route: 048
     Dates: start: 20130814, end: 20131212
  3. ASPIRIN [Concomitant]
  4. VITAMIN D3 [Concomitant]
  5. EILIQUIS [Concomitant]
  6. METOPROLO [Concomitant]
  7. HUMIRA [Concomitant]
  8. CRESTOR [Concomitant]
  9. AMLODIPINE BESYLATE [Concomitant]
  10. SULFASALZINE [Concomitant]
  11. PREDNISONE [Concomitant]
  12. COMBIGAN [Concomitant]
  13. PRENISOLONE [Concomitant]

REACTIONS (3)
  - Contusion [None]
  - Nodule [None]
  - Hyperaesthesia [None]
